FAERS Safety Report 16003812 (Version 1)
Quarter: 2019Q1

REPORT INFORMATION
  Report Type: Spontaneous
  Country: FR (occurrence: FR)
  Receive Date: 20190226
  Receipt Date: 20190226
  Transmission Date: 20190418
  Serious: Yes (Hospitalization)
  Sender: FDA-Public Use
  Company Number: FR-ACCORD-109029

PATIENT
  Age: 86 Year
  Sex: Female

DRUGS (13)
  1. ISORYTHM LP [Concomitant]
     Dosage: STRENGTH: 125 MG
  2. FORLAX [Concomitant]
     Active Substance: POLYETHYLENE GLYCOL 4000
  3. KARDEGIC [Suspect]
     Active Substance: ASPIRIN DL-LYSINE
     Indication: PRODUCT USED FOR UNKNOWN INDICATION
     Dosage: STRENGTH: 300 MG, POWDER FOR ORAL SOLUTION IN SACHET
     Route: 048
     Dates: end: 20180723
  4. DIFFU K [Concomitant]
     Active Substance: POTASSIUM CHLORIDE
  5. UVEDOSE [Concomitant]
     Active Substance: CHOLECALCIFEROL
  6. RAMIPRIL. [Suspect]
     Active Substance: RAMIPRIL
     Indication: PRODUCT USED FOR UNKNOWN INDICATION
  7. GAVISCON [Concomitant]
     Active Substance: ALUMINUM HYDROXIDE\MAGNESIUM CARBONATE
  8. MIANSERIN [Concomitant]
     Active Substance: MIANSERIN
  9. ECONAZOLE. [Concomitant]
     Active Substance: ECONAZOLE NITRATE
  10. ALFUZOSIN [Concomitant]
     Active Substance: ALFUZOSIN
  11. LEVOTHYROX [Concomitant]
     Active Substance: LEVOTHYROXINE
     Dosage: STRENGTH: 100 UG SCORED TABLET
  12. MODOPAR [Concomitant]
     Active Substance: BENSERAZIDE HYDROCHLORIDE\LEVODOPA
     Dosage: STRENGTH: 250 MG
  13. PANTOPRAZOLE [Concomitant]
     Active Substance: PANTOPRAZOLE

REACTIONS (1)
  - Haematuria [Recovered/Resolved]

NARRATIVE: CASE EVENT DATE: 20180723
